FAERS Safety Report 15005572 (Version 1)
Quarter: 2018Q2

REPORT INFORMATION
  Report Type: Spontaneous
  Country: US (occurrence: US)
  Receive Date: 20180521
  Receipt Date: 20180521
  Transmission Date: 20180711
  Serious: Yes (Hospitalization)
  Sender: FDA-Public Use
  Company Number: None

PATIENT
  Age: 40 Year
  Sex: Female
  Weight: 79.5 kg

DRUGS (9)
  1. CLINDAMYCIN. [Suspect]
     Active Substance: CLINDAMYCIN
  2. LETAIRIS [Concomitant]
     Active Substance: AMBRISENTAN
  3. METHOTREXATE. [Concomitant]
     Active Substance: METHOTREXATE
  4. ADCIRCA [Concomitant]
     Active Substance: TADALAFIL
  5. FOLVITE [Concomitant]
     Active Substance: FOLIC ACID
  6. PLAQUENIL [Concomitant]
     Active Substance: HYDROXYCHLOROQUINE SULFATE
  7. ORTHO CYCLEN [Concomitant]
     Active Substance: ETHINYL ESTRADIOL\NORGESTIMATE
  8. VITD [Concomitant]
  9. PEPCID [Concomitant]
     Active Substance: FAMOTIDINE

REACTIONS (6)
  - Erythema [None]
  - Rash pruritic [None]
  - Hypotension [None]
  - Acute kidney injury [None]
  - Hypersensitivity [None]
  - Rash maculo-papular [None]

NARRATIVE: CASE EVENT DATE: 20180215
